FAERS Safety Report 17283694 (Version 1)
Quarter: 2020Q1

REPORT INFORMATION
  Report Type: Spontaneous
  Country: US (occurrence: US)
  Receive Date: 20200117
  Receipt Date: 20200117
  Transmission Date: 20200409
  Serious: Yes (Other)
  Sender: FDA-Public Use
  Company Number: US-PFIZER INC-2020018547

PATIENT
  Age: 46 Year
  Sex: Male

DRUGS (3)
  1. GEODON [Suspect]
     Active Substance: ZIPRASIDONE HYDROCHLORIDE\ZIPRASIDONE MESYLATE
     Dosage: 40 MG, 2X/DAY
     Route: 048
  2. TRAZODONE [Concomitant]
     Active Substance: TRAZODONE HYDROCHLORIDE
     Dosage: UNK
  3. LIPITOR [Suspect]
     Active Substance: ATORVASTATIN CALCIUM
     Dosage: 40 MG, 1X/DAY [1 TABLET, 40 MG, BY MOUTH WITH SUPPER]
     Route: 048

REACTIONS (4)
  - Spinal stenosis [Unknown]
  - Loss of personal independence in daily activities [Unknown]
  - Intervertebral disc protrusion [Unknown]
  - Neoplasm [Unknown]
